FAERS Safety Report 6228022-9 (Version None)
Quarter: 2009Q2

REPORT INFORMATION
  Report Type: 
  Country: None (occurrence: None)
  Receive Date: 20090610
  Receipt Date: 20090610
  Transmission Date: 20091009
  Serious: No
  Sender: FDA-Public Use
  Company Number: None

PATIENT
  Age: 70 Year
  Sex: Female
  Weight: 119.09 kg

DRUGS (2)
  1. DICLOFENAC SODIUM [Suspect]
     Dosage: 75 MG BID PO
     Route: 048
     Dates: start: 20080208, end: 20090521
  2. WARFARIN SODIUM [Suspect]
     Dosage: 5 MG EVERY DAY PO
     Route: 048
     Dates: start: 20081211, end: 20090521

REACTIONS (2)
  - IRON DEFICIENCY ANAEMIA [None]
  - REFRACTORY ANAEMIA [None]
